FAERS Safety Report 7297349-4 (Version None)
Quarter: 2011Q1

REPORT INFORMATION
  Report Type: 
  Country: None (occurrence: None)
  Receive Date: 20110204
  Receipt Date: 20110120
  Transmission Date: 20110831
  Serious: Yes (Disabling, Other)
  Sender: FDA-Public Use
  Company Number: 1000017922

PATIENT
  Age: 78 Year
  Sex: Female

DRUGS (12)
  1. METOJECT (METHOTREXATE SODIUM) (SOLUTION) [Suspect]
     Indication: DERMATOMYOSITIS
     Dosage: 1,4286 MG (10 MG, 1 IN 1 WK)
  2. INIPOMP (PANTOPRAZOLE SODIUM) (TABLETS) [Suspect]
     Dosage: 40 MG (40 MG, 1 IN 1 D), ORAL
     Route: 048
     Dates: start: 20090801
  3. CACIT D3 (CALCIUM, CHOLECALCIFEROL) [Suspect]
     Dosage: 1 DOSAGE FORM (1 DOSAGE FORMS, 1 IN 1 D), ORAL
     Route: 048
     Dates: start: 20090801
  4. CORTANCYL (PREDNISONE) [Suspect]
     Indication: DERMATOMYOSITIS
     Dosage: 70 MG (70 MG, 1 IN 1 D), ORAL; ORAL
     Route: 048
     Dates: start: 20090701
  5. FEMARA [Suspect]
     Indication: BREAST CANCER
     Dosage: (2.5 MG), ORAL
     Route: 048
  6. FOSAMAX [Suspect]
     Dosage: 10 MG (70 MG, 1 IN 1 WK), ORAL
     Route: 048
     Dates: start: 20090801
  7. ESCITALOPRAM OXALATE [Suspect]
     Indication: DEPRESSION
     Dosage: ORAL
     Route: 048
  8. IRBESARTAN [Suspect]
     Indication: HYPERTENSION
     Dosage: ORAL
     Route: 048
  9. VALACICLOVIR [Suspect]
     Dosage: ORAL
     Route: 048
  10. PLAQUENIL [Suspect]
     Indication: DERMATOMYOSITIS
     Dosage: 400 MG (200 MG, 2 IN 1 D), ORAL
     Route: 048
     Dates: start: 20090501, end: 20101010
  11. SPECIAFOLDINE (FOLIC ACID) [Suspect]
     Dosage: ORAL
     Route: 048
  12. PLAQUENIL [Suspect]
     Indication: DERMATOMYOSITIS
     Dosage: ORAL
     Route: 048
     Dates: start: 20101203

REACTIONS (1)
  - CATARACT [None]
